FAERS Safety Report 5840981-2 (Version None)
Quarter: 2008Q3

REPORT INFORMATION
  Report Type: 
  Country: None (occurrence: None)
  Receive Date: 20080811
  Receipt Date: 20080801
  Transmission Date: 20090109
  Serious: Yes (Other)
  Sender: FDA-Public Use
  Company Number: HR-ABBOTT-08P-216-0456811-00

PATIENT
  Sex: Male
  Weight: 63 kg

DRUGS (1)
  1. ZEMPLAR [Suspect]
     Indication: HYPERPARATHYROIDISM
     Dosage: 5 MCG 1+0+1
     Dates: start: 20071217, end: 20080411

REACTIONS (6)
  - ASPHYXIA [None]
  - COUGH [None]
  - DYSPNOEA [None]
  - HYPERSENSITIVITY [None]
  - HYPOTENSION [None]
  - OROPHARYNGEAL DISCOMFORT [None]
